FAERS Safety Report 15150318 (Version 1)
Quarter: 2018Q3

REPORT INFORMATION
  Report Type: Spontaneous
  Country: US (occurrence: US)
  Receive Date: 20180619
  Receipt Date: 20180619
  Transmission Date: 20181010
  Serious: Yes (Life-Threatening, Hospitalization, Other)
  Sender: FDA-Public Use
  Company Number: None

PATIENT
  Sex: Female

DRUGS (2)
  1. NO DRUG NAME [Concomitant]
  2. SODIUM BICARBONATE. [Suspect]
     Active Substance: SODIUM BICARBONATE
     Indication: NEOPLASM MALIGNANT

REACTIONS (2)
  - Blood potassium decreased [None]
  - Drug ineffective [None]

NARRATIVE: CASE EVENT DATE: 20170615
